FAERS Safety Report 21842317 (Version 1)
Quarter: 2023Q1

REPORT INFORMATION
  Report Type: Spontaneous
  Country: US (occurrence: None)
  Receive Date: 20230109
  Receipt Date: 20230109
  Transmission Date: 20230418
  Serious: No
  Sender: FDA-Public Use
  Company Number: None

PATIENT
  Age: 64 Year
  Sex: Male
  Weight: 99.34 kg

DRUGS (1)
  1. LITHIUM [Suspect]
     Active Substance: LITHIUM
     Route: 048
     Dates: start: 20220609, end: 20220628

REACTIONS (18)
  - Dysstasia [None]
  - Muscular weakness [None]
  - Muscular weakness [None]
  - Dyskinesia [None]
  - Muscle twitching [None]
  - Reflexes abnormal [None]
  - Disorientation [None]
  - Eyelid myoclonus [None]
  - Prothrombin time abnormal [None]
  - International normalised ratio abnormal [None]
  - Blood albumin decreased [None]
  - Gamma-glutamyltransferase increased [None]
  - Blood creatine phosphokinase decreased [None]
  - White blood cell count decreased [None]
  - Blood lactic acid abnormal [None]
  - Haemoglobin decreased [None]
  - Toxicity to various agents [None]
  - Tremor [None]

NARRATIVE: CASE EVENT DATE: 20220629
